FAERS Safety Report 13356629 (Version 1)
Quarter: 2017Q1

REPORT INFORMATION
  Report Type: Spontaneous
  Country: None (occurrence: US)
  Receive Date: 20170321
  Receipt Date: 20170321
  Transmission Date: 20170429
  Serious: Yes (Other)
  Sender: FDA-Public Use
  Company Number: US-ALLERGAN-1710407US

PATIENT
  Age: 45 Year
  Sex: Male

DRUGS (1)
  1. ASENAPINE MALEATE - BP [Suspect]
     Active Substance: ASENAPINE MALEATE
     Indication: SCHIZOPHRENIA
     Dosage: UNK
     Route: 060

REACTIONS (19)
  - Therapy cessation [Unknown]
  - Personality change [Unknown]
  - Adverse event [Unknown]
  - Insurance issue [Unknown]
  - Anosognosia [Unknown]
  - Drooling [Unknown]
  - Cogwheel rigidity [Unknown]
  - Therapy non-responder [Unknown]
  - Schizophrenia [Unknown]
  - Treatment noncompliance [Unknown]
  - Tremor [Unknown]
  - Parkinsonism [Unknown]
  - Akathisia [Unknown]
  - Sexual dysfunction [Unknown]
  - Blood prolactin [Unknown]
  - Sedation [Unknown]
  - Therapeutic response changed [Unknown]
  - Social problem [Unknown]
  - Product formulation issue [Unknown]
